FAERS Safety Report 17880814 (Version 1)
Quarter: 2020Q2

REPORT INFORMATION
  Report Type: Spontaneous
  Country: HR (occurrence: HR)
  Receive Date: 20200610
  Receipt Date: 20200610
  Transmission Date: 20200714
  Serious: Yes (Other)
  Sender: FDA-Public Use
  Company Number: HR-ROCHE-2615602

PATIENT
  Age: 17 Year
  Sex: Male

DRUGS (2)
  1. RIVOTRIL [Suspect]
     Active Substance: CLONAZEPAM
     Indication: PRODUCT USED FOR UNKNOWN INDICATION
     Route: 048
  2. NOZINAN [LEVOMEPROMAZINE] [Suspect]
     Active Substance: LEVOMEPROMAZINE
     Indication: PRODUCT USED FOR UNKNOWN INDICATION
     Route: 048

REACTIONS (4)
  - Suicide attempt [Unknown]
  - Aggression [Unknown]
  - Tachycardia [Unknown]
  - Somnolence [Unknown]

NARRATIVE: CASE EVENT DATE: 20200318
